FAERS Safety Report 11941610 (Version 1)
Quarter: 2016Q1

REPORT INFORMATION
  Report Type: Spontaneous
  Country: MT (occurrence: MT)
  Receive Date: 20160123
  Receipt Date: 20160123
  Transmission Date: 20160526
  Serious: Yes (Hospitalization)
  Sender: FDA-Public Use
  Company Number: MT-AUROBINDO-AUR-APL-2016-00308

PATIENT
  Age: 19 Year
  Sex: Male

DRUGS (2)
  1. PERINDOPRIL 8MG [Suspect]
     Active Substance: PERINDOPRIL
     Indication: HYPERTENSION
     Dosage: 8 MG, UNK
     Route: 048
  2. PERINDOPRIL 8MG [Suspect]
     Active Substance: PERINDOPRIL
     Indication: IGA NEPHROPATHY

REACTIONS (9)
  - Brain oedema [Recovering/Resolving]
  - Agitation [Recovering/Resolving]
  - Seizure [Recovering/Resolving]
  - Blood pressure increased [Recovering/Resolving]
  - Somnolence [Recovering/Resolving]
  - Nausea [Recovering/Resolving]
  - Posterior reversible encephalopathy syndrome [Recovering/Resolving]
  - Blindness [Recovering/Resolving]
  - Headache [Recovering/Resolving]
